FAERS Safety Report 5643023-7 (Version None)
Quarter: 2008Q1

REPORT INFORMATION
  Report Type: 
  Country: None (occurrence: None)
  Receive Date: 20080228
  Receipt Date: 20080218
  Transmission Date: 20080703
  Serious: Yes (Death)
  Sender: FDA-Public Use
  Company Number: US-BAYER-200811908NA

PATIENT
  Age: 31 Year
  Sex: Male

DRUGS (10)
  1. AVELOX [Suspect]
     Indication: DRUG USE FOR UNKNOWN INDICATION
     Route: 048
  2. VANCOMYCIN [Concomitant]
  3. KEPPRA [Concomitant]
  4. ATOVAQUONE [Concomitant]
     Dates: start: 20080108
  5. FLUCONAZOLE [Concomitant]
     Dates: start: 20080108
  6. MORPHINE [Concomitant]
     Route: 048
     Dates: start: 20080108
  7. GABAPENTIN [Concomitant]
     Dates: start: 20080108
  8. AZITHROMYCIN [Concomitant]
  9. COCAINE [Concomitant]
  10. HEROIN [Concomitant]

REACTIONS (1)
  - LYMPHOMA [None]
